FAERS Safety Report 16682615 (Version 1)
Quarter: 2019Q3

REPORT INFORMATION
  Report Type: Spontaneous
  Country: US (occurrence: US)
  Receive Date: 20190808
  Receipt Date: 20190808
  Transmission Date: 20191004
  Serious: No
  Sender: FDA-Public Use
  Company Number: US-PFIZER INC-2019337043

PATIENT
  Age: 52 Year
  Sex: Male
  Weight: 92.99 kg

DRUGS (2)
  1. LYRICA [Suspect]
     Active Substance: PREGABALIN
     Indication: DIABETES MELLITUS
     Dosage: 150 MG, THREE TIMES A DAY
     Route: 048
  2. SYNJARDY [Concomitant]
     Active Substance: EMPAGLIFLOZIN\METFORMIN HYDROCHLORIDE
     Indication: DIABETES MELLITUS
     Dosage: UNK

REACTIONS (4)
  - Product use in unapproved indication [Unknown]
  - Vomiting [Unknown]
  - Malaise [Unknown]
  - Off label use [Unknown]
